FAERS Safety Report 8396172-7 (Version None)
Quarter: 2012Q2

REPORT INFORMATION
  Report Type: 
  Country: None (occurrence: None)
  Receive Date: 20120530
  Receipt Date: 20120523
  Transmission Date: 20120825
  Serious: Yes (Other)
  Sender: FDA-Public Use
  Company Number: US-GLAXOSMITHKLINE-A0979359A

PATIENT
  Sex: Female

DRUGS (17)
  1. ESTRACE [Concomitant]
     Dosage: 1TAB PER DAY
     Route: 048
  2. ZANTAC [Suspect]
     Indication: PRODUCT USED FOR UNKNOWN INDICATION
     Route: 065
  3. BONIVA [Concomitant]
     Dosage: 150MG MONTHLY
     Route: 048
  4. CALCIUM + D [Concomitant]
     Dosage: 5000UNIT PER DAY
     Route: 048
  5. MECLIZINE [Concomitant]
     Dosage: 25MG AS REQUIRED
     Route: 048
  6. DILANTIN [Concomitant]
     Dosage: 4CAP PER DAY
     Route: 048
  7. KEPPRA XR [Concomitant]
     Dosage: 1000MG AT NIGHT
     Route: 048
  8. PROVENTIL [Concomitant]
     Dosage: 2PUFF FOUR TIMES PER DAY
     Route: 055
  9. ELAVIL [Concomitant]
     Dosage: 50MG AT NIGHT
     Route: 048
  10. PHENOBARBITAL TAB [Concomitant]
     Dosage: 97.2MG PER DAY
     Route: 048
  11. TAGAMET [Concomitant]
     Dosage: 800MG AT NIGHT
     Route: 048
  12. MULTI-VITAMIN [Concomitant]
     Dosage: 1TAB PER DAY
     Route: 048
  13. IBUPROFEN [Concomitant]
     Indication: PAIN
     Dosage: 1TAB AS REQUIRED
     Route: 048
  14. IMITREX [Suspect]
     Indication: PRODUCT USED FOR UNKNOWN INDICATION
     Route: 065
  15. ACCUPRIL [Concomitant]
     Dosage: 40MG PER DAY
     Route: 048
  16. FLEXERIL [Concomitant]
     Indication: MUSCLE SPASMS
     Dosage: 10MG AS REQUIRED
     Route: 048
  17. MIRAPEX [Concomitant]
     Dosage: 2TAB AT NIGHT
     Route: 048

REACTIONS (2)
  - ADVERSE EVENT [None]
  - ANAPHYLACTIC REACTION [None]
